FAERS Safety Report 7742922-X (Version None)
Quarter: 2011Q3

REPORT INFORMATION
  Report Type: 
  Country: None (occurrence: None)
  Receive Date: 20110912
  Receipt Date: 20110831
  Transmission Date: 20111222
  Serious: Yes (Other)
  Sender: FDA-Public Use
  Company Number: DE-ELI_LILLY_AND_COMPANY-DE201102002211

PATIENT
  Sex: Female

DRUGS (2)
  1. FORTEO [Suspect]
     Indication: OSTEOPOROSIS
     Dosage: UNK, DAILY (1/D)
     Route: 058
     Dates: start: 20100318
  2. CALCIUM CARBONATE [Concomitant]

REACTIONS (5)
  - ARRHYTHMIA [None]
  - GAIT DISTURBANCE [None]
  - HEART RATE INCREASED [None]
  - BONE PAIN [None]
  - ARTHRALGIA [None]
